FAERS Safety Report 5381720-1 (Version None)
Quarter: 2007Q3

REPORT INFORMATION
  Report Type: 
  Country: None (occurrence: None)
  Receive Date: 20070709
  Receipt Date: 20070628
  Transmission Date: 20080115
  Serious: Yes (Hospitalization, Other)
  Sender: FDA-Public Use
  Company Number: PHNU2007DE02062

PATIENT
  Age: 41 Year
  Sex: Male
  Weight: 80 kg

DRUGS (6)
  1. LEPONEX [Suspect]
     Indication: SCHIZOPHRENIA, PARANOID TYPE
     Dosage: 400 MG/DAY
     Route: 048
     Dates: start: 20070509, end: 20070525
  2. LEPONEX [Suspect]
     Dosage: 200 MG/DAY
     Route: 048
     Dates: start: 20070530, end: 20070605
  3. LEPONEX [Suspect]
     Dosage: 175 MG/DAY
     Route: 048
     Dates: start: 20070606, end: 20070607
  4. LEPONEX [Suspect]
     Dosage: 150 MG/DAY
     Route: 048
     Dates: start: 20070608
  5. RISPERDAL [Suspect]
     Dosage: 4 MG/DAY
     Route: 048
     Dates: start: 20070413
  6. TAXILAN [Concomitant]
     Dosage: 225 MG/DAY
     Route: 048
     Dates: start: 20070413, end: 20070608

REACTIONS (2)
  - DRUG LEVEL INCREASED [None]
  - HICCUPS [None]
